FAERS Safety Report 4481862-9 (Version None)
Quarter: 2004Q3

REPORT INFORMATION
  Report Type: 
  Country: None (occurrence: None)
  Receive Date: 20040921
  Receipt Date: 20040106
  Transmission Date: 20050211
  Serious: Yes (Other)
  Sender: FDA-Public Use
  Company Number: 163-20785-03020056(1)

PATIENT
  Age: 66 Year
  Sex: Male

DRUGS (4)
  1. THALOMID [Suspect]
     Indication: MULTIPLE MYELOMA
     Dosage: 300 MG, QD, ORAL; SEE IMAGE
     Route: 048
     Dates: start: 20020923, end: 20021215
  2. THALOMID [Suspect]
     Indication: MULTIPLE MYELOMA
     Dosage: 300 MG, QD, ORAL; SEE IMAGE
     Route: 048
     Dates: start: 20021001
  3. DEXAMETHASONE [Concomitant]
  4. PREDNISONE [Concomitant]

REACTIONS (15)
  - ABDOMINAL DISTENSION [None]
  - ARTHRALGIA [None]
  - ASTHENIA [None]
  - BACK PAIN [None]
  - BONE PAIN [None]
  - DEAFNESS [None]
  - DIZZINESS [None]
  - HYPERHIDROSIS [None]
  - MUSCLE CRAMP [None]
  - POLLAKIURIA [None]
  - PYREXIA [None]
  - RENAL PAIN [None]
  - TINNITUS [None]
  - TREMOR [None]
  - VISION BLURRED [None]
